FAERS Safety Report 19118256 (Version 2)
Quarter: 2021Q2

REPORT INFORMATION
  Report Type: Spontaneous
  Country: PL (occurrence: PL)
  Receive Date: 20210409
  Receipt Date: 20210414
  Transmission Date: 20210717
  Serious: Yes (Hospitalization)
  Sender: FDA-Public Use
  Company Number: PL-ABBVIE-21K-129-3850818-00

PATIENT
  Age: 73 Year
  Sex: Female

DRUGS (1)
  1. VENETOCLAX. [Suspect]
     Active Substance: VENETOCLAX
     Indication: CHRONIC LYMPHOCYTIC LEUKAEMIA
     Route: 048
     Dates: start: 201912

REACTIONS (6)
  - Microcytic anaemia [Recovered/Resolved]
  - Iron deficiency [Recovered/Resolved]
  - Gastric mucosa erythema [Unknown]
  - Peptic ulcer [Unknown]
  - Haemoglobin decreased [Recovered/Resolved]
  - Chronic gastritis [Unknown]

NARRATIVE: CASE EVENT DATE: 202012
